FAERS Safety Report 10649752 (Version 3)
Quarter: 2015Q1

REPORT INFORMATION
  Report Type: Spontaneous
  Country: US (occurrence: US)
  Receive Date: 20141212
  Receipt Date: 20150313
  Transmission Date: 20150720
  Serious: Yes (Hospitalization)
  Sender: FDA-Public Use
  Company Number: US-BAYER-2014-182494

PATIENT
  Age: 34 Year
  Sex: Female
  Weight: 53.52 kg

DRUGS (5)
  1. DTP-VACCIN [Concomitant]
     Dosage: UNK
     Route: 030
     Dates: start: 20120819
  2. PITOCIN [Concomitant]
     Active Substance: OXYTOCIN
     Dosage: 10 U/ML, ONCE
     Route: 042
  3. MIRENA [Suspect]
     Active Substance: LEVONORGESTREL
     Indication: CONTRACEPTION
     Dosage: 20 MCG/24HR, CONT
     Route: 015
     Dates: start: 20121011, end: 20121024
  4. PRENATAL VITAMINS [VIT C,B5,B12,D2,B3,B6,RETINOL PALMIT,B2,B1 MONO [Concomitant]
     Dosage: UNK
     Dates: start: 20120819
  5. PITOCIN [Concomitant]
     Active Substance: OXYTOCIN
     Dosage: 10 U/ML, ONCE
     Route: 042
     Dates: start: 20120819

REACTIONS (7)
  - Uterine perforation [None]
  - Emotional distress [Not Recovered/Not Resolved]
  - Pelvic pain [None]
  - Injury [None]
  - Device issue [None]
  - Pain [None]
  - Fear of disease [Not Recovered/Not Resolved]

NARRATIVE: CASE EVENT DATE: 20121019
